FAERS Safety Report 7478595-3 (Version None)
Quarter: 2011Q2

REPORT INFORMATION
  Report Type: 
  Country: None (occurrence: None)
  Receive Date: 20110511
  Receipt Date: 20110511
  Transmission Date: 20111010
  Serious: Yes (Hospitalization)
  Sender: FDA-Public Use
  Company Number: None

PATIENT
  Sex: Female
  Weight: 74.8435 kg

DRUGS (6)
  1. MAGNESIUM [Concomitant]
  2. ZOFRAN [Concomitant]
  3. DILAUDID [Concomitant]
  4. K+ [Concomitant]
  5. CIPROFLOXACIN [Suspect]
     Indication: DIVERTICULITIS
     Dosage: UNABLE TO DETERMINE MANUFACTURERS
     Route: 048
     Dates: start: 20110228
  6. CALCIUM CARBONATE [Concomitant]

REACTIONS (7)
  - HAEMATEMESIS [None]
  - BLOOD POTASSIUM DECREASED [None]
  - BLOOD SODIUM DECREASED [None]
  - RETCHING [None]
  - COLITIS [None]
  - OESOPHAGITIS [None]
  - GASTRITIS [None]
